FAERS Safety Report 10674152 (Version 1)
Quarter: 2014Q4

REPORT INFORMATION
  Report Type: Spontaneous
  Country: TR (occurrence: None)
  Receive Date: 20141222
  Receipt Date: 20141222
  Transmission Date: 20150529
  Serious: Yes (Other)
  Sender: FDA-Public Use
  Company Number: 2014COR00148

PATIENT
  Age: 21 Year
  Sex: Male

DRUGS (1)
  1. ROPINIROLE (ROPINIROLE) UNKNOWN [Suspect]
     Active Substance: ROPINIROLE
     Indication: PARKINSON^S DISEASE
     Dosage: GREATER THAN 8 MG, 1X/DAY

REACTIONS (4)
  - Impulsive behaviour [None]
  - Mania [None]
  - Agitation [None]
  - Stereotypy [None]
